FAERS Safety Report 4383427-6 (Version None)
Quarter: 2004Q2

REPORT INFORMATION
  Report Type: 
  Country: None (occurrence: None)
  Receive Date: 20040623
  Receipt Date: 20040507
  Transmission Date: 20050107
  Serious: Yes (Hospitalization, Other)
  Sender: FDA-Public Use
  Company Number: PHBS2004JP06258

PATIENT
  Age: 66 Year
  Sex: Male
  Weight: 70 kg

DRUGS (12)
  1. LAMISIL [Suspect]
     Indication: NAIL TINEA
     Dosage: 125 MG/D
     Route: 048
     Dates: start: 20040319, end: 20040417
  2. BUFFERIN [Concomitant]
     Dosage: 81 MG/D
     Route: 048
     Dates: end: 20040417
  3. ALLOPURINOL [Concomitant]
     Dosage: 100 MG/D
     Route: 048
     Dates: end: 20040417
  4. NORVASC [Concomitant]
     Dosage: 5 MG/D
     Route: 048
     Dates: end: 20040417
  5. KERLONG [Concomitant]
     Dosage: 5 MG/D
     Route: 048
     Dates: end: 20040417
  6. CARDENALIN [Concomitant]
     Dosage: 21 MG/D
     Route: 048
     Dates: end: 20040417
  7. CIBENOL [Concomitant]
     Dosage: 300 MG/D
     Route: 048
     Dates: end: 20040417
  8. LASIX [Concomitant]
     Dosage: 20 MG/D
     Route: 048
     Dates: end: 20040417
  9. PL [Concomitant]
     Indication: NASOPHARYNGITIS
     Dosage: 4 G/D
     Route: 048
     Dates: start: 20040414, end: 20040417
  10. NIZORAL [Concomitant]
     Route: 061
  11. MYCOSPOR [Suspect]
  12. CEFPODOXIME PROXETIL [Suspect]

REACTIONS (14)
  - ALANINE AMINOTRANSFERASE INCREASED [None]
  - ASPARTATE AMINOTRANSFERASE INCREASED [None]
  - ASTHENIA [None]
  - BLOOD ALKALINE PHOSPHATASE INCREASED [None]
  - BLOOD BILIRUBIN INCREASED [None]
  - BLOOD LACTATE DEHYDROGENASE INCREASED [None]
  - DIPLOPIA [None]
  - FEELING ABNORMAL [None]
  - HEPATITIS [None]
  - INFLUENZA LIKE ILLNESS [None]
  - JAUNDICE [None]
  - LIVER DISORDER [None]
  - NASOPHARYNGITIS [None]
  - VITH NERVE PARALYSIS [None]
